FAERS Safety Report 4798132-1 (Version None)
Quarter: 2005Q4

REPORT INFORMATION
  Report Type: 
  Country: None (occurrence: None)
  Receive Date: 20051014
  Receipt Date: 20050923
  Transmission Date: 20060501
  Serious: Yes (Other)
  Sender: FDA-Public Use
  Company Number: US-BOEHRINGER INGELHEIM PHARMACEUTICALS, INC.-2005-BP-16940BP

PATIENT
  Age: 76 Year
  Sex: Male
  Weight: 78.02 kg

DRUGS (7)
  1. FLOMAX [Suspect]
     Indication: BENIGN PROSTATIC HYPERPLASIA
     Route: 048
     Dates: start: 20030301
  2. FLOMAX [Suspect]
     Indication: URINE ANALYSIS ABNORMAL
  3. HYDROCHLOROTHIAZIDE [Concomitant]
  4. KERLONE 5 [Concomitant]
  5. MULTI-VITAMIN [Concomitant]
  6. OMEGA 3 [Concomitant]
  7. GARLIC [Concomitant]

REACTIONS (3)
  - CATARACT OPERATION COMPLICATION [None]
  - IRIS DISORDER [None]
  - PUPILLARY DISORDER [None]
